FAERS Safety Report 5348978-6 (Version None)
Quarter: 2007Q2

REPORT INFORMATION
  Report Type: 
  Country: None (occurrence: None)
  Receive Date: 20070607
  Receipt Date: 20070529
  Transmission Date: 20071010
  Serious: Yes (Hospitalization)
  Sender: FDA-Public Use
  Company Number: JP-JNJFOC-20070600470

PATIENT
  Age: 78 Year
  Sex: Female

DRUGS (5)
  1. RISPERDAL [Suspect]
     Route: 048
  2. RISPERDAL [Suspect]
     Indication: MENTAL DISORDER
     Route: 048
  3. HALOPERIDOL [Concomitant]
     Route: 048
  4. HALOPERIDOL [Concomitant]
     Route: 048
  5. AKINETON [Concomitant]
     Route: 048

REACTIONS (5)
  - ASTHENIA [None]
  - BLOOD GLUCOSE INCREASED [None]
  - ILEUS [None]
  - OEDEMA [None]
  - SOMNOLENCE [None]
